FAERS Safety Report 20391373 (Version 1)
Quarter: 2022Q1

REPORT INFORMATION
  Report Type: Spontaneous
  Country: US (occurrence: US)
  Receive Date: 20220128
  Receipt Date: 20220128
  Transmission Date: 20220423
  Serious: Yes (Death)
  Sender: FDA-Public Use
  Company Number: US-CELGENE-USA-20220106676

PATIENT
  Age: 85 Year
  Sex: Male
  Weight: 105.78 kg

DRUGS (1)
  1. POMALYST [Suspect]
     Active Substance: POMALIDOMIDE
     Indication: Plasma cell myeloma
     Dosage: 3 MILLIGRAM
     Route: 048
     Dates: start: 202009

REACTIONS (3)
  - Death [Fatal]
  - Aortic valve disease [Unknown]
  - Renal disorder [Unknown]

NARRATIVE: CASE EVENT DATE: 20220123
